FAERS Safety Report 7480906-X (Version None)
Quarter: 2011Q2

REPORT INFORMATION
  Report Type: 
  Country: None (occurrence: None)
  Receive Date: 20110506
  Receipt Date: 20110414
  Transmission Date: 20111010
  Serious: Yes (Hospitalization)
  Sender: FDA-Public Use
  Company Number: 2011001714

PATIENT
  Age: 66 Year
  Sex: Female
  Weight: 58 kg

DRUGS (47)
  1. SORAFENIB (TABLET) [Suspect]
     Indication: HEPATIC NEOPLASM MALIGNANT
     Dosage: 400 MG, BID, ORAL, 400 MG, BID, ORAL, 400 MG, BID, ORAL, 400 MG QD ORAL, 400 MG QD ORAL
     Route: 048
     Dates: start: 20100812, end: 20100823
  2. SORAFENIB (TABLET) [Suspect]
     Indication: HEPATIC NEOPLASM MALIGNANT
     Dosage: 400 MG, BID, ORAL, 400 MG, BID, ORAL, 400 MG, BID, ORAL, 400 MG QD ORAL, 400 MG QD ORAL
     Route: 048
     Dates: start: 20101213, end: 20110303
  3. SORAFENIB (TABLET) [Suspect]
     Indication: HEPATIC NEOPLASM MALIGNANT
     Dosage: 400 MG, BID, ORAL, 400 MG, BID, ORAL, 400 MG, BID, ORAL, 400 MG QD ORAL, 400 MG QD ORAL
     Route: 048
     Dates: start: 20110308, end: 20110327
  4. SORAFENIB (TABLET) [Suspect]
     Indication: HEPATIC NEOPLASM MALIGNANT
     Dosage: 400 MG, BID, ORAL, 400 MG, BID, ORAL, 400 MG, BID, ORAL, 400 MG QD ORAL, 400 MG QD ORAL
     Route: 048
     Dates: start: 20101002, end: 20101107
  5. SORAFENIB (TABLET) [Suspect]
     Indication: HEPATIC NEOPLASM MALIGNANT
     Dosage: 400 MG, BID, ORAL, 400 MG, BID, ORAL, 400 MG, BID, ORAL, 400 MG QD ORAL, 400 MG QD ORAL
     Route: 048
     Dates: start: 20101110, end: 20101212
  6. SORAFENIB (TABLET) [Suspect]
     Indication: HEPATIC NEOPLASM MALIGNANT
     Dosage: 400 MG, BID, ORAL, 400 MG, BID, ORAL, 400 MG, BID, ORAL, 400 MG QD ORAL, 400 MG QD ORAL
     Route: 048
     Dates: start: 20100921, end: 20100922
  7. DOXYCYCLIN (DOXYCYCLINE) [Concomitant]
  8. MAGNESIUM W/VITAMIN B6 [Concomitant]
  9. DOLIPRANE (PARACETAMOL) [Concomitant]
  10. SPASFON (SPASFON) [Concomitant]
  11. LASIX [Concomitant]
  12. ATORVASTATIN CALCIUM [Concomitant]
  13. DIPROSONE [Concomitant]
  14. MOTILIUM [Concomitant]
  15. XYZALL (LEVOCETIRIZINE) [Concomitant]
  16. FLUTICASONE PROPIONATE [Concomitant]
  17. NOVONORM (REPAGLINIDE) [Concomitant]
  18. DUPHALAC [Concomitant]
  19. NEXIUM [Concomitant]
  20. XENETIX (IOBITRIDOL) [Concomitant]
  21. OMNIPAQUE 70 [Concomitant]
  22. NOVOLOG [Concomitant]
  23. MAG 2 (MAGNESIUM PIDOLATE) [Concomitant]
  24. OGASTRO (LANSOPRAZOLE) [Concomitant]
  25. PHOSPHONEUROS (PHOSPHONEUROS) [Concomitant]
  26. PROCTOLOG (PROCTOLOG) [Concomitant]
  27. SOLU-MEDROL [Concomitant]
  28. KALEORID (POTASSIUMJ CHLORIDE) [Concomitant]
  29. CALCIPRAT (CALCIUM CARBONATE) [Concomitant]
  30. DOTAREM (NEGLUMINE GADOGTERATE) [Concomitant]
  31. SMECTA (SMECTITE) [Concomitant]
  32. POLARAMINE [Concomitant]
  33. PREDNISOLONE [Concomitant]
  34. DIFFU K (POTASSIUM CHLORIDE) [Concomitant]
  35. DEXERYL (OSINEX) [Concomitant]
  36. ERLOTINIB HYDROCHLORIDE [Suspect]
     Indication: HEPATIC NEOPLASM MALIGNANT
     Dosage: 150 MG ORAL, 150 MG ORAL,100 MG ORAL,MG ORAL, 50  MG, QD, ORAL
     Route: 048
     Dates: start: 20101002, end: 20101107
  37. ERLOTINIB HYDROCHLORIDE [Suspect]
     Indication: HEPATIC NEOPLASM MALIGNANT
     Dosage: 150 MG ORAL, 150 MG ORAL,100 MG ORAL,MG ORAL, 50  MG, QD, ORAL
     Route: 048
     Dates: start: 20110308, end: 20110328
  38. ERLOTINIB HYDROCHLORIDE [Suspect]
     Indication: HEPATIC NEOPLASM MALIGNANT
     Dosage: 150 MG ORAL, 150 MG ORAL,100 MG ORAL,MG ORAL, 50  MG, QD, ORAL
     Route: 048
     Dates: start: 20100812, end: 20100823
  39. ERLOTINIB HYDROCHLORIDE [Suspect]
     Indication: HEPATIC NEOPLASM MALIGNANT
     Dosage: 150 MG ORAL, 150 MG ORAL,100 MG ORAL,MG ORAL, 50  MG, QD, ORAL
     Route: 048
     Dates: start: 20101110, end: 20110303
  40. ERLOTINIB HYDROCHLORIDE [Suspect]
     Indication: HEPATIC NEOPLASM MALIGNANT
     Dosage: 150 MG ORAL, 150 MG ORAL,100 MG ORAL,MG ORAL, 50  MG, QD, ORAL
     Route: 048
     Dates: start: 20100901, end: 20100919
  41. ERLOTINIB HYDROCHLORIDE [Suspect]
     Indication: HEPATIC NEOPLASM MALIGNANT
     Dosage: 150 MG ORAL, 150 MG ORAL,100 MG ORAL,MG ORAL, 50  MG, QD, ORAL
     Route: 048
     Dates: start: 20100921, end: 20100922
  42. TIORFAN (ACETORPHAN) [Concomitant]
  43. FERROUS SULFATE TAB [Concomitant]
  44. LANTUS [Concomitant]
  45. COVERSYL (PERINDOPRIL) [Concomitant]
  46. AUGMENTIN '125' [Concomitant]
  47. IMODIUM [Concomitant]

REACTIONS (3)
  - ANAEMIA [None]
  - GASTROINTESTINAL HAEMORRHAGE [None]
  - THROMBOCYTOPENIA [None]
